FAERS Safety Report 10392279 (Version 1)
Quarter: 2014Q3

REPORT INFORMATION
  Report Type: Report from Study
  Country: US (occurrence: US)
  Receive Date: 20140819
  Receipt Date: 20140819
  Transmission Date: 20150326
  Serious: Yes (Hospitalization, Other)
  Sender: FDA-Public Use
  Company Number: US-PFIZER INC-2014220925

PATIENT
  Age: 46 Year
  Sex: Female

DRUGS (56)
  1. PREDNISONE. [Concomitant]
     Active Substance: PREDNISONE
  2. MAGNESIUM OXIDE. [Concomitant]
     Active Substance: MAGNESIUM OXIDE
  3. PHYTONADIONE. [Concomitant]
     Active Substance: PHYTONADIONE
  4. BASILIXIMAB [Concomitant]
     Active Substance: BASILIXIMAB
  5. CISATRACURIUM [Concomitant]
     Active Substance: CISATRACURIUM
  6. FENTANYL. [Concomitant]
     Active Substance: FENTANYL
  7. PHENYLEPHRINE [Concomitant]
     Active Substance: PHENYLEPHRINE\PHENYLEPHRINE HYDROCHLORIDE
  8. DARBEPOETIN ALFA [Concomitant]
     Active Substance: DARBEPOETIN ALFA
  9. ESOMEPRAZOLE [Concomitant]
     Active Substance: ESOMEPRAZOLE
  10. METOCLOPRAMIDE. [Concomitant]
     Active Substance: METOCLOPRAMIDE
  11. PARICALCITOL. [Concomitant]
     Active Substance: PARICALCITOL
  12. POLYETHYLENE GLYCOL [Concomitant]
     Active Substance: POLYETHYLENE GLYCOLS
  13. ACETAMINOPHEN. [Concomitant]
     Active Substance: ACETAMINOPHEN
  14. SODIUM BICARBONATE. [Concomitant]
     Active Substance: SODIUM BICARBONATE
  15. CEFTRIAXONE. [Concomitant]
     Active Substance: CEFTRIAXONE
  16. IPRATROPIUM BROMIDE. [Concomitant]
     Active Substance: IPRATROPIUM BROMIDE
  17. LINEZOLID. [Concomitant]
     Active Substance: LINEZOLID
  18. POTASSIUM CHLORIDE. [Concomitant]
     Active Substance: POTASSIUM CHLORIDE
  19. RENVELA [Concomitant]
     Active Substance: SEVELAMER CARBONATE
  20. HYDROMORPHONE [Concomitant]
     Active Substance: HYDROMORPHONE
  21. NEOSTIGMINE [Concomitant]
     Active Substance: NEOSTIGMINE
  22. METOPROLOL [Concomitant]
     Active Substance: METOPROLOL
  23. METRONIDAZOLE. [Concomitant]
     Active Substance: METRONIDAZOLE
  24. LIDOCAINE. [Concomitant]
     Active Substance: LIDOCAINE
  25. HEPARIN [Concomitant]
     Active Substance: HEPARIN SODIUM
  26. LEFLUNOMIDE. [Concomitant]
     Active Substance: LEFLUNOMIDE
  27. OXYCODONE/PARACETAMOL [Concomitant]
  28. ALBUTEROL. [Concomitant]
     Active Substance: ALBUTEROL
  29. AZTREONAM. [Concomitant]
     Active Substance: AZTREONAM
  30. CHLORHEXIDINE GLUCONATE. [Concomitant]
     Active Substance: CHLORHEXIDINE GLUCONATE
  31. TACROLIMUS. [Concomitant]
     Active Substance: TACROLIMUS
  32. MYCOPHENOLATE MOFETIL. [Concomitant]
     Active Substance: MYCOPHENOLATE MOFETIL
  33. FUROSEMIDE. [Concomitant]
     Active Substance: FUROSEMIDE
  34. NYSTATIN. [Concomitant]
     Active Substance: NYSTATIN
  35. SENNA [Concomitant]
     Active Substance: SENNA LEAF\SENNOSIDES\SENNOSIDES A AND B
  36. VALGANCICLOVIR [Concomitant]
     Active Substance: VALGANCICLOVIR
  37. METOLAZONE. [Concomitant]
     Active Substance: METOLAZONE
  38. METHYLPREDNISOLONE [Concomitant]
     Active Substance: METHYLPREDNISOLONE
  39. MYCOPHENOLIC ACID [Concomitant]
     Active Substance: MYCOPHENOLIC ACID
  40. GLYCOPYRROLATE. [Concomitant]
     Active Substance: GLYCOPYRROLATE
  41. DIPHENHYDRAMINE [Concomitant]
     Active Substance: DIPHENHYDRAMINE
  42. DOCUSATE SODIUM. [Concomitant]
     Active Substance: DOCUSATE SODIUM
  43. INSULIN [Concomitant]
     Active Substance: INSULIN NOS
  44. SULFAMETHOXAZOLE-TRIMETHOPRIM (SMZ) [Concomitant]
     Active Substance: SULFAMETHOXAZOLE\TRIMETHOPRIM
  45. MAGNESIUM SULFATE [Concomitant]
     Active Substance: MAGNESIUM SULFATE
  46. METHYLPREDNISOLONE SODIUM SUCCINATE. [Suspect]
     Active Substance: METHYLPREDNISOLONE SODIUM SUCCINATE
     Route: 042
  47. BLINDED THERAPY [Suspect]
     Active Substance: UNSPECIFIED INGREDIENT
     Dosage: SINGLE IV DOSE (24.9 ML)
     Route: 042
     Dates: start: 20120429
  48. ESMOLOL [Concomitant]
     Active Substance: ESMOLOL HYDROCHLORIDE
  49. CLINDAMYCIN [Concomitant]
     Active Substance: CLINDAMYCIN\CLINDAMYCIN PHOSPHATE
  50. EPHEDRINE [Concomitant]
     Active Substance: EPHEDRINE
  51. MEROPENEM. [Concomitant]
     Active Substance: MEROPENEM
  52. IMMUNE GLOBULIN [Concomitant]
     Active Substance: HUMAN IMMUNOGLOBULIN G
  53. MIDAZOLAM [Concomitant]
     Active Substance: MIDAZOLAM\MIDAZOLAM HYDROCHLORIDE
  54. ONDANSETRON [Concomitant]
     Active Substance: ONDANSETRON
  55. CALCIUM GLUCONATE. [Concomitant]
     Active Substance: CALCIUM GLUCONATE
  56. BARIUM SULFATE [Concomitant]
     Active Substance: BARIUM SULFATE

REACTIONS (18)
  - Renal failure [Recovered/Resolved]
  - Hyperkalaemia [Recovered/Resolved]
  - Transplant dysfunction [Recovered/Resolved]
  - Pneumonia [Recovered/Resolved]
  - Renal failure acute [Recovered/Resolved]
  - Urinary incontinence [Recovered/Resolved]
  - Perinephric abscess [Recovered/Resolved]
  - Anaemia [Recovered/Resolved]
  - Hydronephrosis [Recovered/Resolved]
  - Respiratory failure [Recovered/Resolved]
  - Haematuria [Recovered/Resolved]
  - Sepsis [Recovered/Resolved]
  - White blood cell count increased [Recovered/Resolved]
  - Transplant rejection [Recovered/Resolved]
  - Haematoma [Recovered/Resolved]
  - Urinary tract infection [Recovered/Resolved]
  - Bacteraemia [Recovered/Resolved with Sequelae]
  - Cholecystitis [Recovered/Resolved]

NARRATIVE: CASE EVENT DATE: 20120509
